FAERS Safety Report 17365701 (Version 1)
Quarter: 2020Q1

REPORT INFORMATION
  Report Type: Spontaneous
  Country: CH (occurrence: CH)
  Receive Date: 20200204
  Receipt Date: 20200204
  Transmission Date: 20200409
  Serious: Yes (Hospitalization)
  Sender: FDA-Public Use
  Company Number: CH-ASTRAZENECA-2020SE13917

PATIENT
  Age: 25693 Day
  Sex: Male

DRUGS (8)
  1. ASPIRIN CARDIO [Concomitant]
     Active Substance: ASPIRIN
  2. METFORMIN [Concomitant]
     Active Substance: METFORMIN HYDROCHLORIDE
  3. ELIQUIS [Concomitant]
     Active Substance: APIXABAN
  4. COVERSUM N [Concomitant]
     Active Substance: PERINDOPRIL
  5. TORASEMID SANDOZ ECO [Concomitant]
     Active Substance: TORSEMIDE
  6. FORXIGA [Suspect]
     Active Substance: DAPAGLIFLOZIN
     Dosage: 1.0DF UNKNOWN
     Route: 048
     Dates: start: 2019
  7. ROSUVASTATIN SANDOZ [Concomitant]
     Active Substance: ROSUVASTATIN CALCIUM
  8. TEMESTA EXPIDET [Concomitant]
     Active Substance: LORAZEPAM

REACTIONS (1)
  - Finger amputation [Recovered/Resolved]

NARRATIVE: CASE EVENT DATE: 20191204
